FAERS Safety Report 4983051-8 (Version None)
Quarter: 2006Q2

REPORT INFORMATION
  Report Type: 
  Country: None (occurrence: None)
  Receive Date: 20060426
  Receipt Date: 20060403
  Transmission Date: 20061013
  Serious: No
  Sender: FDA-Public Use
  Company Number: PHRM2006FR01218

PATIENT
  Sex: Female
  Weight: 90 kg

DRUGS (1)
  1. ZOMETA [Suspect]
     Route: 042

REACTIONS (1)
  - PAIN IN JAW [None]
